FAERS Safety Report 4313334-6 (Version None)
Quarter: 2004Q1

REPORT INFORMATION
  Report Type: 
  Country: None (occurrence: None)
  Receive Date: 20040304
  Receipt Date: 20040224
  Transmission Date: 20041129
  Serious: Yes (Death)
  Sender: FDA-Public Use
  Company Number: US-JNJFOC-20031204663

PATIENT
  Age: 78 Year
  Sex: Female
  Weight: 58.0604 kg

DRUGS (7)
  1. RISPERDAL [Suspect]
     Indication: AGITATION
     Dosage: 0.25 MG, 1 IN 1 DAY, ORAL
     Route: 048
     Dates: start: 20031219, end: 20031221
  2. RISPERDAL [Suspect]
     Indication: DEMENTIA
     Dosage: 0.25 MG, 1 IN 1 DAY, ORAL
     Route: 048
     Dates: start: 20031219, end: 20031221
  3. L-THYROXINE (LEVOTHYROXINE SODIUM) [Concomitant]
  4. NORVASC [Concomitant]
  5. ATENOLOL [Concomitant]
  6. COUMADIN [Concomitant]
  7. LIPITOR [Concomitant]

REACTIONS (2)
  - LETHARGY [None]
  - SUDDEN DEATH [None]
